FAERS Safety Report 9233896 (Version 1)
Quarter: 2013Q2

REPORT INFORMATION
  Report Type: Spontaneous
  Country: US (occurrence: US)
  Receive Date: 20130416
  Receipt Date: 20130416
  Transmission Date: 20140414
  Serious: No
  Sender: FDA-Public Use
  Company Number: US-MYLANLABS-2012S1019029

PATIENT
  Age: 54 Year
  Sex: Female

DRUGS (4)
  1. METHIMAZOLE TABLETS [Suspect]
     Indication: HYPERTHYROIDISM
     Route: 048
     Dates: start: 201206
  2. CITRACAL /00751520/ [Concomitant]
  3. MULTIVITAMIN [Concomitant]
  4. PREVACID [Concomitant]

REACTIONS (3)
  - Drug effect decreased [Not Recovered/Not Resolved]
  - Thyroid function test [Not Recovered/Not Resolved]
  - Heart rate irregular [Not Recovered/Not Resolved]
